FAERS Safety Report 7672806-7 (Version None)
Quarter: 2011Q3

REPORT INFORMATION
  Report Type: 
  Country: None (occurrence: None)
  Receive Date: 20110809
  Receipt Date: 20110801
  Transmission Date: 20111222
  Serious: Yes (Hospitalization, Other)
  Sender: FDA-Public Use
  Company Number: US-US-EMD SERONO, INC.-7074540

PATIENT
  Sex: Male
  Weight: 49 kg

DRUGS (2)
  1. REBIF [Suspect]
     Route: 058
     Dates: start: 20100129
  2. REBIF [Suspect]
     Indication: PRODUCT USED FOR UNKNOWN INDICATION
     Route: 058
     Dates: start: 20070101

REACTIONS (7)
  - PANCREATIC DISORDER [None]
  - CEREBRAL HAEMORRHAGE [None]
  - ABASIA [None]
  - NEPHROLITHIASIS [None]
  - OESOPHAGEAL IRRITATION [None]
  - HYPERTENSION [None]
  - HIATUS HERNIA [None]
